FAERS Safety Report 6924223-2 (Version None)
Quarter: 2010Q3

REPORT INFORMATION
  Report Type: 
  Country: None (occurrence: None)
  Receive Date: 20100813
  Receipt Date: 20100805
  Transmission Date: 20110219
  Serious: Yes (Hospitalization)
  Sender: FDA-Public Use
  Company Number: US-ABBOTT-10P-163-0661363-00

PATIENT
  Age: 33 Year
  Sex: Female

DRUGS (2)
  1. ADALIMUMAB [Suspect]
     Indication: RHEUMATOID ARTHRITIS
  2. ETANERCEPT [Suspect]
     Indication: RHEUMATOID ARTHRITIS

REACTIONS (1)
  - DERMATOMYOSITIS [None]
